FAERS Safety Report 8301366 (Version 2)
Quarter: 2012Q4

REPORT INFORMATION
  Report Type: 
  Country: US (occurrence: US)
  Receive Date: 20111219
  Receipt Date: 20121026
  Transmission Date: 20130627
  Serious: No
  Sender: FDA-Public Use
  Company Number: US-ASTRAZENECA-2011SE50826

PATIENT
  Age: 564 Month
  Sex: Male
  Weight: 68.9 kg

DRUGS (2)
  1. CRESTOR [Suspect]
     Indication: HYPERLIPIDAEMIA
     Route: 048
     Dates: start: 200901, end: 200901
  2. ENALAPRIL [Concomitant]
     Indication: HYPERTENSION

REACTIONS (2)
  - Influenza like illness [Recovered/Resolved]
  - Myalgia [Recovered/Resolved]
